FAERS Safety Report 6916648-6 (Version None)
Quarter: 2010Q3

REPORT INFORMATION
  Report Type: 
  Country: None (occurrence: None)
  Receive Date: 20100810
  Receipt Date: 20100729
  Transmission Date: 20110219
  Serious: Yes (Congenital Anomaly)
  Sender: FDA-Public Use
  Company Number: DE-ROCHE-709227

PATIENT
  Sex: Male
  Weight: 1.8 kg

DRUGS (4)
  1. AVASTIN [Suspect]
     Indication: RECTAL CANCER METASTATIC
     Dates: start: 20090515, end: 20090815
  2. IRINOTECAN HCL [Concomitant]
     Indication: RECTAL CANCER METASTATIC
     Dosage: ACCORDING TO  FOLFIRI PROTOCOL
     Dates: start: 20090515, end: 20090815
  3. FLUOROURACIL [Concomitant]
     Indication: RECTAL CANCER METASTATIC
     Dosage: ADMINISTRATION PER BOLUS
     Dates: start: 20090515, end: 20090815
  4. FLUOROURACIL [Concomitant]
     Dosage: ADMINISTRATED AS 46H INFUSION
     Dates: start: 20090515, end: 20090815

REACTIONS (7)
  - ATRIAL SEPTAL DEFECT [None]
  - JOINT DISLOCATION [None]
  - MUSCULOSKELETAL DISORDER [None]
  - POLYDACTYLY [None]
  - PULMONARY VALVE STENOSIS [None]
  - SYNDACTYLY [None]
  - VENTRICULAR SEPTAL DEFECT [None]
